FAERS Safety Report 4867774-7 (Version None)
Quarter: 2005Q4

REPORT INFORMATION
  Report Type: 
  Country: None (occurrence: None)
  Receive Date: 20051223
  Receipt Date: 20051223
  Transmission Date: 20060501
  Serious: No
  Sender: FDA-Public Use
  Company Number: None

PATIENT
  Age: 51 Year
  Sex: Female

DRUGS (12)
  1. METFORMIN [Suspect]
     Indication: DIABETES MELLITUS
     Dosage: 1000MG  BID  PO
     Route: 048
     Dates: start: 20011226, end: 20050911
  2. GLIPIZIDE [Concomitant]
  3. LANSOPRAZOLE [Concomitant]
  4. FERROUS SULFATE TAB [Concomitant]
  5. ASCORBIC ACID [Concomitant]
  6. CYANOCOBALAMINE [Concomitant]
  7. GABAPENTIN [Concomitant]
  8. HYDROCHLOROTHIAZIDE [Concomitant]
  9. SIMVASTATIN [Concomitant]
  10. ASPIRIN [Concomitant]
  11. METOPROLOL [Concomitant]
  12. PIOGLITAZONE HCL [Concomitant]

REACTIONS (9)
  - ANION GAP INCREASED [None]
  - DIARRHOEA [None]
  - HAEMODIALYSIS [None]
  - HYPERKALAEMIA [None]
  - LACTIC ACIDOSIS [None]
  - NAUSEA [None]
  - ORAL INTAKE REDUCED [None]
  - RENAL FAILURE ACUTE [None]
  - VOMITING [None]
